FAERS Safety Report 7098270-7 (Version None)
Quarter: 2010Q4

REPORT INFORMATION
  Report Type: 
  Country: None (occurrence: None)
  Receive Date: 20101105
  Receipt Date: 20101025
  Transmission Date: 20110411
  Serious: Yes (Hospitalization)
  Sender: FDA-Public Use
  Company Number: LEO-2010-00953

PATIENT
  Age: 74 Year
  Sex: Male

DRUGS (10)
  1. INNOHEP [Suspect]
     Indication: PULMONARY EMBOLISM
     Dosage: 16000 IU (16000 IU), SUBCUTANEOUS
     Route: 058
     Dates: start: 20100905, end: 20100909
  2. HEPARINA CHOAY (HEPARIN SODIUM) (INJECTION) [Suspect]
     Indication: PULMONARY EMBOLISM
     Dosage: 3200 IU (3200 IU, 1 IN 1 D), INTRAVENOUS
     Route: 042
     Dates: start: 20100902, end: 20100905
  3. VALSARTAN [Concomitant]
  4. ZOCOR [Concomitant]
  5. BISOPROLOL FUMARATE [Concomitant]
  6. ALDACTONE [Concomitant]
  7. NIPOMP (PANTOPRAZOLE SODIUM) [Concomitant]
  8. PREVISCAN (FENTOXIFYLLINE) [Concomitant]
  9. BUMETANIDE [Concomitant]
  10. ZOLPIDEM TARTRATE [Concomitant]

REACTIONS (2)
  - LEUKOCYTOCLASTIC VASCULITIS [None]
  - PURPURA [None]
